FAERS Safety Report 21304269 (Version 2)
Quarter: 2022Q4

REPORT INFORMATION
  Report Type: Spontaneous
  Country: US (occurrence: US)
  Receive Date: 20220907
  Receipt Date: 20221004
  Transmission Date: 20230113
  Serious: No
  Sender: FDA-Public Use
  Company Number: US-BAUSCH-BL-2022-021511

PATIENT
  Age: 78 Year
  Sex: Female

DRUGS (1)
  1. BEXAROTENE [Suspect]
     Active Substance: BEXAROTENE
     Indication: T-cell lymphoma
     Dosage: STARTED 3-4 MONTHS AGO
     Route: 048
     Dates: start: 2022, end: 2022

REACTIONS (4)
  - Nail ridging [Not Recovered/Not Resolved]
  - Incorrect dose administered [Unknown]
  - Product use issue [Unknown]
  - Product distribution issue [Unknown]

NARRATIVE: CASE EVENT DATE: 20220101
